FAERS Safety Report 10107826 (Version 2)
Quarter: 2014Q3

REPORT INFORMATION
  Report Type: Other
  Country: US (occurrence: US)
  Receive Date: 20140424
  Receipt Date: 20140917
  Transmission Date: 20150326
  Serious: Yes (Death, Hospitalization, Other)
  Sender: FDA-Public Use
  Company Number: US-GSKPPD-2014GSK006602

PATIENT
  Age: 88 Year
  Sex: Male

DRUGS (6)
  1. AVANDIA [Suspect]
     Active Substance: ROSIGLITAZONE MALEATE
     Indication: DIABETES MELLITUS
     Dosage: DATES OF AVANDIA USE COULD NOT BE CONFIRMED IN RECORDS REVIEWED.
     Route: 048
  2. NITROGLYCERIN. [Concomitant]
     Active Substance: NITROGLYCERIN
  3. DIGOXIN. [Concomitant]
     Active Substance: DIGOXIN
  4. IMDUR [Concomitant]
     Active Substance: ISOSORBIDE MONONITRATE
  5. COREG [Concomitant]
     Active Substance: CARVEDILOL
  6. PLAVIX [Concomitant]
     Active Substance: CLOPIDOGREL BISULFATE

REACTIONS (3)
  - Arteriosclerosis [Recovered/Resolved]
  - Cardio-respiratory arrest [Fatal]
  - Myocardial infarction [Unknown]

NARRATIVE: CASE EVENT DATE: 20050425
